FAERS Safety Report 4442089-X (Version None)
Quarter: 2004Q3

REPORT INFORMATION
  Report Type: 
  Country: None (occurrence: None)
  Receive Date: 20040903
  Receipt Date: 20040526
  Transmission Date: 20050211
  Serious: Yes (Hospitalization)
  Sender: FDA-Public Use
  Company Number: 2004UW11427

PATIENT
  Age: 63 Year
  Sex: Male

DRUGS (7)
  1. CRESTOR [Suspect]
     Dosage: 10 MG QD PO
     Route: 048
  2. LISINOPRIL [Suspect]
     Dosage: 5 MG QD PO
     Route: 048
  3. FLOMAX [Concomitant]
  4. ASPIRIN [Concomitant]
  5. VIAGRA [Concomitant]
  6. NEXIUM [Concomitant]
  7. METFORMIN HCL [Concomitant]

REACTIONS (1)
  - ABDOMINAL PAIN [None]
